FAERS Safety Report 8807179 (Version 1)
Quarter: 2012Q4

REPORT INFORMATION
  Report Type: Report from Study
  Country: US (occurrence: US)
  Receive Date: 20120925
  Receipt Date: 20120925
  Transmission Date: 20130627
  Serious: Yes (Hospitalization)
  Sender: FDA-Public Use
  Company Number: US-ABBOTT-12P-163-0980707-00

PATIENT
  Sex: Male
  Weight: 61.29 kg

DRUGS (4)
  1. HUMIRA [Suspect]
     Indication: CROHN^S DISEASE
     Dates: start: 2011, end: 2011
  2. HUMIRA [Suspect]
     Dates: start: 2011, end: 2011
  3. HUMIRA [Suspect]
  4. HUMIRA [Suspect]

REACTIONS (5)
  - Abdominal adhesions [Recovered/Resolved]
  - Intestinal obstruction [Unknown]
  - Crohn^s disease [Not Recovered/Not Resolved]
  - Abdominal pain [Not Recovered/Not Resolved]
  - Diarrhoea [Not Recovered/Not Resolved]
